FAERS Safety Report 10693582 (Version 1)
Quarter: 2015Q1

REPORT INFORMATION
  Report Type: Spontaneous
  Country: IN (occurrence: IN)
  Receive Date: 20150106
  Receipt Date: 20150106
  Transmission Date: 20150721
  Serious: Yes (Hospitalization)
  Sender: FDA-Public Use
  Company Number: IN-MYLANLABS-2014M1015859

PATIENT

DRUGS (1)
  1. QUININE [Suspect]
     Active Substance: QUININE
     Route: 065

REACTIONS (2)
  - Acute kidney injury [Recovered/Resolved]
  - Methaemoglobinaemia [Recovered/Resolved]
